FAERS Safety Report 5824897-3 (Version None)
Quarter: 2008Q3

REPORT INFORMATION
  Report Type: 
  Country: None (occurrence: None)
  Receive Date: 20080728
  Receipt Date: 20080721
  Transmission Date: 20090109
  Serious: Yes (Death)
  Sender: FDA-Public Use
  Company Number: CA-BOEHRINGER INGELHEIM GMBH, GERMANY-2004-CN-00360CN

PATIENT
  Age: 70 Year
  Sex: Female

DRUGS (6)
  1. SPIRIVA [Suspect]
     Indication: CHRONIC OBSTRUCTIVE PULMONARY DISEASE
     Dosage: OD
     Route: 055
     Dates: start: 20031111, end: 20040126
  2. FOSAMAX [Concomitant]
     Route: 048
  3. FLOVENT [Concomitant]
     Route: 055
  4. ATROVENT [Concomitant]
  5. VENTOLIN [Concomitant]
  6. UNIPHYL [Concomitant]
     Route: 048

REACTIONS (2)
  - ARRHYTHMIA [None]
  - SUDDEN DEATH [None]
